FAERS Safety Report 4606829-9 (Version None)
Quarter: 2005Q1

REPORT INFORMATION
  Report Type: 
  Country: None (occurrence: None)
  Receive Date: 20050310
  Receipt Date: 20050117
  Transmission Date: 20050727
  Serious: Yes (Other)
  Sender: FDA-Public Use
  Company Number: TRP_0056_2005

PATIENT
  Age: 48 Year
  Sex: Female

DRUGS (4)
  1. RIBASPHERE [Suspect]
     Indication: HEPATITIS C
  2. PEG-INTRON [Suspect]
     Dates: start: 20040522
  3. LOTENSIN [Concomitant]
  4. COMPAZINE AND PCN [Concomitant]

REACTIONS (3)
  - FORMICATION [None]
  - HALLUCINATIONS, MIXED [None]
  - SUICIDAL IDEATION [None]
